FAERS Safety Report 7659785-3 (Version None)
Quarter: 2011Q3

REPORT INFORMATION
  Report Type: 
  Country: None (occurrence: None)
  Receive Date: 20110805
  Receipt Date: 20110124
  Transmission Date: 20111222
  Serious: No
  Sender: FDA-Public Use
  Company Number: US-ABBOTT-11P-163-0700928-00

PATIENT
  Sex: Female
  Weight: 61.29 kg

DRUGS (4)
  1. DEPAKOTE ER [Suspect]
     Indication: CONVULSION
     Dates: start: 20110115, end: 20110122
  2. FOSAMAX [Concomitant]
     Indication: OSTEOPOROSIS
  3. LASIX [Concomitant]
     Indication: HYPERTENSION
  4. ZOCOR [Concomitant]
     Indication: BLOOD CHOLESTEROL INCREASED

REACTIONS (2)
  - SOMNOLENCE [None]
  - INCORRECT DRUG ADMINISTRATION DURATION [None]
